FAERS Safety Report 20297721 (Version 1)
Quarter: 2022Q1

REPORT INFORMATION
  Report Type: Spontaneous
  Country: US (occurrence: None)
  Receive Date: 20220105
  Receipt Date: 20220105
  Transmission Date: 20220423
  Serious: Yes (Hospitalization)
  Sender: FDA-Public Use
  Company Number: US-ROCHE-2719351

PATIENT
  Age: 63 Year
  Sex: Female
  Weight: 82.1 kg

DRUGS (1)
  1. ACTIVASE [Suspect]
     Active Substance: ALTEPLASE
     Indication: Ischaemic stroke
     Dosage: LYOPHILIZED POWDER?X 1 DOSE ; THERAPY STATUS : ONGOING: NO
     Route: 042
     Dates: start: 20201005, end: 20201005

REACTIONS (1)
  - Cerebral haemorrhage [Recovering/Resolving]

NARRATIVE: CASE EVENT DATE: 20201006
